FAERS Safety Report 5050420-X (Version None)
Quarter: 2006Q3

REPORT INFORMATION
  Report Type: 
  Country: None (occurrence: None)
  Receive Date: 20060707
  Receipt Date: 20060623
  Transmission Date: 20061208
  Serious: Yes (Other)
  Sender: FDA-Public Use
  Company Number: 2006EU001922

PATIENT
  Age: 64 Year
  Sex: Female

DRUGS (11)
  1. TACROLIMUS CAPSULES [Suspect]
     Indication: LIVER TRANSPLANT
     Dosage: 5 MG, UID/QD, ORAL
     Route: 048
     Dates: start: 20050403, end: 20060323
  2. ZENAPAX [Suspect]
     Indication: LIVER TRANSPLANT
     Dosage: 120 MG, UID/QD, IV NOS
     Route: 042
     Dates: start: 20050329, end: 20050405
  3. MYCOPHENOLATE MOFETIL [Suspect]
     Indication: LIVER TRANSPLANT
     Dosage: SEE IMAGE
     Route: 048
     Dates: start: 20050329, end: 20050402
  4. MYCOPHENOLATE MOFETIL [Suspect]
     Indication: LIVER TRANSPLANT
     Dosage: SEE IMAGE
     Route: 048
     Dates: start: 20050403, end: 20060323
  5. METHYLPREDNISOLONE [Suspect]
     Indication: LIVER TRANSPLANT
     Dosage: 50 MG, UID/QD
     Dates: start: 20050329, end: 20050403
  6. PREDNISONE TAB [Suspect]
     Indication: LIVER TRANSPLANT
     Dosage: 1 MG, UID/QD
     Dates: start: 20050404, end: 20060323
  7. ZOVIRAX [Concomitant]
  8. VALACYCLOVIR [Concomitant]
  9. BACTRIM (TRIMETHOPRIM) [Concomitant]
  10. HEPARIN [Concomitant]
  11. FRAXIPARINE (NADROPARIN CALCIUM) [Concomitant]

REACTIONS (1)
  - PERITONEAL EFFUSION [None]
